FAERS Safety Report 19547860 (Version 1)
Quarter: 2021Q3

REPORT INFORMATION
  Report Type: Spontaneous
  Country: US (occurrence: US)
  Receive Date: 20210714
  Receipt Date: 20210714
  Transmission Date: 20211014
  Serious: No
  Sender: FDA-Public Use
  Company Number: US-SPECGX-T202001391

PATIENT
  Age: 26 Year
  Sex: Male
  Weight: 59 kg

DRUGS (1)
  1. ACETAMINOPHEN AND CODEINE [Suspect]
     Active Substance: ACETAMINOPHEN\CODEINE PHOSPHATE
     Indication: ARTHRALGIA
     Dosage: UNK (300?30 MG, EVERY 8 HOURS, FOR 3 WEEKS)
     Route: 048
     Dates: start: 202006, end: 2020

REACTIONS (5)
  - Feeling abnormal [Recovering/Resolving]
  - Drug ineffective [Unknown]
  - Hypoaesthesia [Recovered/Resolved]
  - Abdominal pain upper [Unknown]
  - Product quality issue [Unknown]

NARRATIVE: CASE EVENT DATE: 202006
